FAERS Safety Report 23958565 (Version 1)
Quarter: 2024Q2

REPORT INFORMATION
  Report Type: Spontaneous
  Country: US (occurrence: US)
  Receive Date: 20240610
  Receipt Date: 20240610
  Transmission Date: 20240716
  Serious: No
  Sender: FDA-Public Use
  Company Number: US-GE HEALTHCARE-2024CSU002751

PATIENT
  Age: 66 Year
  Sex: Female

DRUGS (1)
  1. CLARISCAN [Suspect]
     Active Substance: GADOTERATE MEGLUMINE
     Indication: Magnetic resonance imaging
     Dosage: UNK, TOTAL
     Route: 065

REACTIONS (3)
  - Contusion [Not Recovered/Not Resolved]
  - Injection site pain [Recovered/Resolved]
  - Injection site coldness [Not Recovered/Not Resolved]
